FAERS Safety Report 4835883-4 (Version None)
Quarter: 2005Q4

REPORT INFORMATION
  Report Type: 
  Country: None (occurrence: None)
  Receive Date: 20051123
  Receipt Date: 20051102
  Transmission Date: 20060501
  Serious: Yes (Hospitalization)
  Sender: FDA-Public Use
  Company Number: 2005CG01805

PATIENT
  Age: 77 Year
  Sex: Male

DRUGS (14)
  1. MOPRAL [Suspect]
     Route: 048
     Dates: start: 20050929, end: 20051006
  2. MOPRAL [Suspect]
     Route: 042
     Dates: start: 20050918, end: 20050928
  3. FLAGYL [Suspect]
     Route: 048
     Dates: start: 20050929, end: 20051005
  4. DIGOXINE NATIVELLE [Suspect]
     Route: 048
  5. DIGOXINE NATIVELLE [Suspect]
     Route: 048
     Dates: end: 20051001
  6. OFLOCET [Suspect]
     Route: 042
     Dates: start: 20050914, end: 20050927
  7. OFLOCET [Suspect]
     Route: 048
     Dates: start: 20050928, end: 20051005
  8. AUGMENTIN [Suspect]
     Dosage: 2 G + 400 MG
     Route: 042
     Dates: start: 20050914, end: 20050922
  9. HEPARINE CHOAY [Suspect]
     Route: 042
     Dates: start: 20050914, end: 20051003
  10. ATARAX [Concomitant]
  11. SECTRAL [Concomitant]
  12. PROPOFOL [Concomitant]
  13. VASTAREL [Concomitant]
  14. LOVENOX [Concomitant]
     Dates: start: 20050913, end: 20050914

REACTIONS (10)
  - CEREBROVASCULAR ACCIDENT [None]
  - FOOT AMPUTATION [None]
  - HAEMODIALYSIS [None]
  - HYPERKALAEMIA [None]
  - NECROSIS [None]
  - OVERDOSE [None]
  - RENAL FAILURE ACUTE [None]
  - SUPERINFECTION [None]
  - THROMBOCYTOPENIA [None]
  - VASCULAR PURPURA [None]
